FAERS Safety Report 6061021-9 (Version None)
Quarter: 2009Q1

REPORT INFORMATION
  Report Type: 
  Country: None (occurrence: None)
  Receive Date: 20090129
  Receipt Date: 20090129
  Transmission Date: 20090719
  Serious: No
  Sender: FDA-Public Use
  Company Number: None

PATIENT
  Sex: Male
  Weight: 105.45 kg

DRUGS (12)
  1. LISINOPRIL [Suspect]
     Dosage: 20 MG TABLET QD ORAL
     Route: 048
     Dates: start: 20090115, end: 20090128
  2. ALLOPURINOL [Concomitant]
  3. AMLODIPINE [Concomitant]
  4. BENZOYL PEROXIDE WASH [Concomitant]
  5. ECONAZOLE NITRATE [Concomitant]
  6. FLUOCINOLONE ACETONIDE [Concomitant]
  7. INDOCIN [Concomitant]
  8. NIZORAL [Concomitant]
  9. NIZORAL [Concomitant]
  10. PENLAC [Concomitant]
  11. SILDENAFIL CITRATE [Concomitant]
  12. TRIAMCINOLONE ACETONIDE [Concomitant]

REACTIONS (1)
  - RASH [None]
